FAERS Safety Report 9521539 (Version 1)
Quarter: 2013Q1

REPORT INFORMATION
  Report Type: Spontaneous
  Country: US (occurrence: None)
  Receive Date: 20130305
  Receipt Date: 20130305
  Transmission Date: 20140127
  Serious: Yes (Hospitalization)
  Sender: FDA-Public Use
  Company Number: 163-21880-12080175

PATIENT
  Age: 69 Year
  Sex: Female
  Weight: 48 kg

DRUGS (3)
  1. REVLIMID (LENALIDOMIDE) (CAPSULES) [Suspect]
     Indication: PLASMA CELL MYELOMA
     Route: 048
     Dates: start: 200901
  2. METHOTREXATE (METHOTREXATE) [Concomitant]
  3. BUSPAR (BUSPIRONE HYDROCHLORIDE) [Concomitant]

REACTIONS (1)
  - Gastrointestinal haemorrhage [None]
